FAERS Safety Report 13058015 (Version 1)
Quarter: 2016Q4

REPORT INFORMATION
  Report Type: Spontaneous
  Country: US (occurrence: US)
  Receive Date: 20161222
  Receipt Date: 20161222
  Transmission Date: 20170207
  Serious: Yes (Other)
  Sender: FDA-Public Use
  Company Number: None

PATIENT
  Age: 64 Year
  Sex: Female
  Weight: 54 kg

DRUGS (8)
  1. ZICAM NOS [Suspect]
     Active Substance: ACETAMINOPHEN\CHLORPHENIRAMINE MALEATE\DEXTROMETHORPHAN HYDROBROMIDE\PHENYLEPHRINE HYDROCHLORIDE OR ACETAMINOPHEN\DEXTROMETHORPHAN HYDROBROMIDE\DOXYLAMINE SUCCINATE\PHENYLEPHRINE HYDROCHLORIDE
     Indication: NASOPHARYNGITIS
     Dosage: OTHER STRENGTH:30 ML;QUANTITY:4 SPRAY(S);OTHER FREQUENCY:EVERY 3 HRS;OTHER ROUTE:SPRAYED INSIDE CHEEKS,GUMS,ROOF OF MOUTH?
     Dates: start: 20161221, end: 20161221
  2. FISH OIL [Concomitant]
     Active Substance: FISH OIL
  3. RED RICE YEAST [Concomitant]
     Active Substance: DIETARY SUPPLEMENT
  4. ZINC [Concomitant]
     Active Substance: ZINC\ZINC CHLORIDE
  5. CALCIUM [Concomitant]
     Active Substance: CALCIUM
  6. OCUVITE [Concomitant]
     Active Substance: VITAMINS
  7. COQ10 [Concomitant]
     Active Substance: UBIDECARENONE
  8. VITAMIN B COMPLEX [Concomitant]
     Active Substance: CYANOCOBALAMIN\DEXPANTHENOL\NIACINAMIDE\PYRIDOXINE HYDROCHLORIDE\RIBOFLAVIN 5^-PHOSPHATE SODIUM\THIAMINE HYDROCHLORIDE\VITAMIN B COMPLEX

REACTIONS (2)
  - Drug dose omission [None]
  - Palpitations [None]

NARRATIVE: CASE EVENT DATE: 20161222
